FAERS Safety Report 15718073 (Version 1)
Quarter: 2018Q4

REPORT INFORMATION
  Report Type: Spontaneous
  Country: US (occurrence: US)
  Receive Date: 20181213
  Receipt Date: 20181213
  Transmission Date: 20190205
  Serious: No
  Sender: FDA-Public Use
  Company Number: US-ASTELLAS-2017US056531

PATIENT
  Sex: Male

DRUGS (1)
  1. TARCEVA [Suspect]
     Active Substance: ERLOTINIB HYDROCHLORIDE
     Indication: LUNG NEOPLASM MALIGNANT
     Dosage: 25 MG, ONCE DAILY (ALTERNATE 3TAB(75MG) AND 2TAB(50MG)ONCE DAILY)
     Route: 048
     Dates: start: 20161202

REACTIONS (1)
  - Chronic obstructive pulmonary disease [Unknown]
